FAERS Safety Report 5751654-9 (Version None)
Quarter: 2008Q2

REPORT INFORMATION
  Report Type: 
  Country: None (occurrence: None)
  Receive Date: 20080528
  Receipt Date: 20080520
  Transmission Date: 20081010
  Serious: Yes (Congenital Anomaly)
  Sender: FDA-Public Use
  Company Number: PHHY2008NL08273

PATIENT
  Sex: Male
  Weight: 2.2 kg

DRUGS (1)
  1. TRILEPTAL [Suspect]
     Route: 064

REACTIONS (3)
  - CONGENITAL DIAPHRAGMATIC HERNIA [None]
  - DRUG EXPOSURE DURING PREGNANCY [None]
  - LAPAROSCOPIC SURGERY [None]
